FAERS Safety Report 10228310 (Version 1)
Quarter: 2014Q2

REPORT INFORMATION
  Report Type: Report from Study
  Country: LB (occurrence: LB)
  Receive Date: 20140610
  Receipt Date: 20140610
  Transmission Date: 20141212
  Serious: Yes (Hospitalization)
  Sender: FDA-Public Use
  Company Number: PHHY2014LB069971

PATIENT
  Age: 75 Year
  Sex: Female

DRUGS (5)
  1. ACLASTA [Suspect]
     Indication: OSTEOPOROSIS
     Dosage: 5 MG, UNK
     Route: 042
     Dates: start: 20140520
  2. DIOVAN [Concomitant]
     Dosage: 160 MG, UNK
     Route: 048
  3. ISOPTIN [Concomitant]
     Dosage: 1 DF, UNK
     Route: 048
  4. ASPICOT [Concomitant]
     Dosage: 10 MG, UNK
     Route: 048
  5. CALTRATE [Concomitant]
     Dosage: 1 DF, UNK
     Route: 048

REACTIONS (3)
  - Deep vein thrombosis [Recovering/Resolving]
  - Peripheral swelling [Recovered/Resolved]
  - Pain in extremity [Recovered/Resolved]
